FAERS Safety Report 4588803-4 (Version None)
Quarter: 2005Q1

REPORT INFORMATION
  Report Type: 
  Country: None (occurrence: None)
  Receive Date: 20050216
  Receipt Date: 20050202
  Transmission Date: 20050727
  Serious: Yes (Other)
  Sender: FDA-Public Use
  Company Number: 2005028239

PATIENT

DRUGS (1)
  1. GEODON [Suspect]
     Indication: BIPOLAR DISORDER
     Dosage: 160 MG (1 IN 1 D), ORAL
     Route: 048
     Dates: start: 20050101, end: 20050101

REACTIONS (1)
  - TARDIVE DYSKINESIA [None]
